FAERS Safety Report 16075833 (Version 3)
Quarter: 2019Q2

REPORT INFORMATION
  Report Type: Report from Study
  Country: DE (occurrence: DE)
  Receive Date: 20190315
  Receipt Date: 20190416
  Transmission Date: 20190711
  Serious: Yes (Hospitalization)
  Sender: FDA-Public Use
  Company Number: DE-ROCHE-2268681

PATIENT
  Age: 40 Year
  Sex: Male
  Weight: 75 kg

DRUGS (13)
  1. METHYLPREDNISOLONE. [Concomitant]
     Active Substance: METHYLPREDNISOLONE
     Route: 065
     Dates: start: 20121126, end: 20121128
  2. FENISTIL (GERMANY) [Concomitant]
     Active Substance: DIMETHINDENE MALEATE
     Dosage: SUBSEQUENT DOSES ON 18/SEP/2013, 04/SEP/2013, 01/OCT/2012,02/FEB/2015,02/MAY/2012,03/APR/2013, 03/MA
     Route: 065
     Dates: start: 20130904, end: 20171030
  3. CETIRIZIN [Concomitant]
     Active Substance: CETIRIZINE HYDROCHLORIDE
     Indication: SEASONAL ALLERGY
     Route: 065
  4. OCRELIZUMAB. [Suspect]
     Active Substance: OCRELIZUMAB
     Indication: PRIMARY PROGRESSIVE MULTIPLE SCLEROSIS
     Dosage: LAST DOSE PRIOR TO SAE ON 26/SEP/2018?SUBSEQUENT DOSES OF OCRELIZUMAB ON  20/JUN/2016, 21/NOV/2016,
     Route: 042
     Dates: start: 20151222
  5. CIALIS [Concomitant]
     Active Substance: TADALAFIL
     Route: 065
     Dates: start: 20160101, end: 20180701
  6. CEFUROX [Concomitant]
     Active Substance: CEFUROXIME AXETIL
     Indication: NASOPHARYNGITIS
     Route: 065
     Dates: start: 20190114, end: 20190119
  7. CEFUROX [Concomitant]
     Active Substance: CEFUROXIME AXETIL
     Indication: ORCHITIS
     Route: 065
     Dates: start: 20190114, end: 20190119
  8. PARACETAMOL [Concomitant]
     Active Substance: ACETAMINOPHEN
     Dosage: SUBSEQUENT DOSES ON 18/SEP/2013
     Route: 065
     Dates: start: 20130904
  9. OCRELIZUMAB. [Suspect]
     Active Substance: OCRELIZUMAB
     Indication: PRIMARY PROGRESSIVE MULTIPLE SCLEROSIS
     Dosage: TWO INTRAVENOUS (IV) INFUSIONS OF BLINDED OCRELIZUMAB SEPARATED BY 14 DAYS IN EACH TREATMENT CYCLE O
     Route: 042
     Dates: start: 20120416
  10. CIALIS [Concomitant]
     Active Substance: TADALAFIL
     Indication: SEXUAL DYSFUNCTION
     Route: 065
     Dates: start: 20180702
  11. FENISTIL (GERMANY) [Concomitant]
     Active Substance: DIMETHINDENE MALEATE
     Dosage: SUBSEQUENT DOSES ON 02/FEB/2015, 02/MAY/2012, 03/APR/2013, 03/MAR/2014, 04/AUG/2014, 05/JAN/2016, 06
     Route: 065
     Dates: start: 20121001
  12. METHYLPREDNISOLONE. [Concomitant]
     Active Substance: METHYLPREDNISOLONE
     Dosage: SUBSEQUENT DOSES ON  02/FEB/2015, 02/MAY/2012, 03/APR/2013, 03/MAR/2014, 04/AUG/2014, 04/SEP/2013, 0
     Route: 065
     Dates: start: 20121001
  13. CEFUROX [Concomitant]
     Active Substance: CEFUROXIME AXETIL
     Route: 065
     Dates: start: 20150320, end: 20150327

REACTIONS (1)
  - Epididymitis [Recovered/Resolved]

NARRATIVE: CASE EVENT DATE: 20190128
